FAERS Safety Report 10387550 (Version 1)
Quarter: 2014Q3

REPORT INFORMATION
  Report Type: Spontaneous
  Country: US (occurrence: US)
  Receive Date: 20140815
  Receipt Date: 20140815
  Transmission Date: 20150326
  Serious: No
  Sender: FDA-Public Use
  Company Number: US-TARO-2014TAR00094

PATIENT
  Sex: Male

DRUGS (1)
  1. ATHLETES FOOT NOS [Suspect]
     Active Substance: MICONAZOLE NITRATE OR TERBINAFINE HYDROCHLORIDE OR TOLNAFTATE
     Dosage: UNK UNK, AS NEEDED
     Dates: start: 20140608, end: 20140618

REACTIONS (1)
  - Drug ineffective [Unknown]

NARRATIVE: CASE EVENT DATE: 201406
